FAERS Safety Report 12897034 (Version 2)
Quarter: 2016Q4

REPORT INFORMATION
  Report Type: Spontaneous
  Country: ES (occurrence: ES)
  Receive Date: 20161031
  Receipt Date: 20161227
  Transmission Date: 20170207
  Serious: Yes (Other)
  Sender: FDA-Public Use
  Company Number: ES-PFIZER INC-2016502017

PATIENT
  Age: 60 Year
  Sex: Male

DRUGS (6)
  1. ELIQUIS [Concomitant]
     Active Substance: APIXABAN
     Dosage: UNK
     Dates: start: 201606
  2. TRANGOREX [Suspect]
     Active Substance: AMIODARONE HYDROCHLORIDE
     Dosage: 200 MG, 6 DAYS PER WEEK
     Route: 048
     Dates: end: 20161009
  3. CAPENON [Concomitant]
     Active Substance: AMLODIPINE BESYLATE\OLMESARTAN MEDOXOMIL
     Dosage: UNK
     Dates: start: 201606
  4. TRANGOREX [Suspect]
     Active Substance: AMIODARONE HYDROCHLORIDE
     Dosage: 200 MG, 4 DAYSPER WEEK (MONDAY, TUESDAY, THURSDAY AND SATURDAY)
     Route: 048
     Dates: start: 20161010
  5. TRANGOREX [Suspect]
     Active Substance: AMIODARONE HYDROCHLORIDE
     Indication: ATRIAL FLUTTER
     Dosage: 200 MG/ DAY, 7 DAYS PER WEEK
     Route: 048
     Dates: start: 201606
  6. PROVISACOR [Concomitant]
     Active Substance: ROSUVASTATIN
     Dosage: UNK
     Dates: start: 201606, end: 201610

REACTIONS (5)
  - Influenza like illness [Unknown]
  - Insomnia [Recovering/Resolving]
  - Pyrexia [Unknown]
  - Chills [Unknown]
  - Tremor [Unknown]

NARRATIVE: CASE EVENT DATE: 201609
